FAERS Safety Report 5072403-6 (Version None)
Quarter: 2006Q3

REPORT INFORMATION
  Report Type: 
  Country: None (occurrence: None)
  Receive Date: 20060710
  Receipt Date: 20050912
  Transmission Date: 20061208
  Serious: Yes (Life-Threatening, Hospitalization, Other)
  Sender: FDA-Public Use
  Company Number: 2005US001132

PATIENT
  Age: 60 Year
  Sex: Male
  Weight: 91.6 kg

DRUGS (1)
  1. ADENOSCAN [Suspect]
     Indication: SCAN MYOCARDIAL PERFUSION
     Dosage: 51.40 MG, UID/QD
     Dates: start: 20050811

REACTIONS (4)
  - DYSPNOEA [None]
  - FATIGUE [None]
  - HYPOTENSION [None]
  - RESPIRATORY ARREST [None]
